FAERS Safety Report 25386396 (Version 2)
Quarter: 2025Q3

REPORT INFORMATION
  Report Type: Spontaneous
  Country: AU (occurrence: AU)
  Receive Date: 20250602
  Receipt Date: 20250702
  Transmission Date: 20251020
  Serious: Yes (Other)
  Sender: MYLAN
  Company Number: AU-MYLANLABS-2025M1043407

PATIENT

DRUGS (4)
  1. EPIPEN JR [Suspect]
     Active Substance: EPINEPHRINE
     Indication: Product used for unknown indication
  2. EPIPEN JR [Suspect]
     Active Substance: EPINEPHRINE
     Route: 065
  3. EPIPEN JR [Suspect]
     Active Substance: EPINEPHRINE
     Route: 065
  4. EPIPEN JR [Suspect]
     Active Substance: EPINEPHRINE

REACTIONS (2)
  - Device failure [Unknown]
  - Drug dose omission by device [Unknown]
